FAERS Safety Report 18070954 (Version 1)
Quarter: 2020Q3

REPORT INFORMATION
  Report Type: Spontaneous
  Country: CA (occurrence: CA)
  Receive Date: 20200727
  Receipt Date: 20200727
  Transmission Date: 20201103
  Serious: Yes (Other)
  Sender: FDA-Public Use
  Company Number: CA-009507513-2007CAN007772

PATIENT
  Age: 58 Year
  Sex: Male
  Weight: 68 kg

DRUGS (9)
  1. SEEBRI BREEZHALER [Concomitant]
     Active Substance: GLYCOPYRROLATE
     Route: 065
  2. ADVAIR HFA [Concomitant]
     Active Substance: FLUTICASONE PROPIONATE\SALMETEROL XINAFOATE
     Dosage: DOSAGE FORM: NOT SPECIFIED
     Route: 065
  3. ASPIRIN. [Concomitant]
     Active Substance: ASPIRIN
     Dosage: DOSAGE FORM: NOT SPECIFIED
     Route: 065
  4. BRILINTA [Concomitant]
     Active Substance: TICAGRELOR
     Route: 065
  5. PANTOPRAZOLE [Concomitant]
     Active Substance: PANTOPRAZOLE
     Dosage: DOSAGE FORM: NOT SPECIFIED
     Route: 065
  6. KEYTRUDA [Suspect]
     Active Substance: PEMBROLIZUMAB
     Indication: LUNG ADENOCARCINOMA STAGE IV
     Dosage: 121 MILLIGRAM, 1 EVERY 3 WEEKS
     Route: 042
  7. VENTOLIN [Concomitant]
     Active Substance: ALBUTEROL SULFATE
     Dosage: DOSAGE FORM: NOT SPECIFIED
     Route: 065
  8. BISOPROLOL [Concomitant]
     Active Substance: BISOPROLOL
     Route: 065
  9. CRESTOR [Concomitant]
     Active Substance: ROSUVASTATIN CALCIUM
     Route: 065

REACTIONS (1)
  - Blood creatinine increased [Unknown]
